FAERS Safety Report 15042867 (Version 1)
Quarter: 2018Q2

REPORT INFORMATION
  Report Type: Spontaneous
  Country: DE (occurrence: DE)
  Receive Date: 20180621
  Receipt Date: 20180621
  Transmission Date: 20180711
  Serious: Yes (Other)
  Sender: FDA-Public Use
  Company Number: DE-MYLANLABS-2018M1040996

PATIENT
  Sex: Female

DRUGS (3)
  1. AKRINOR [Concomitant]
     Active Substance: CAFEDRINE HYDROCHLORIDE\THEODRENALINE
     Indication: PROPHYLAXIS
     Dosage: 0.5 ML, 200 MG/2 ML CAFEDRINHYDROCHLORIDE AND 10 MG/2 ML THEODRENALINHYDROCHLORIDE
     Route: 042
  2. BUPIVACAINE. [Suspect]
     Active Substance: BUPIVACAINE
     Indication: CAESAREAN SECTION
     Dosage: 2 ML, QD (SINGLE)
     Route: 037
  3. FENTANYL. [Suspect]
     Active Substance: FENTANYL
     Indication: CAESAREAN SECTION
     Dosage: 0.4 ML, QD (SINGLE)
     Route: 037

REACTIONS (2)
  - Maternal exposure during delivery [Recovered/Resolved]
  - Procedural hypotension [Unknown]
